FAERS Safety Report 7202342-3 (Version None)
Quarter: 2010Q4

REPORT INFORMATION
  Report Type: 
  Country: None (occurrence: None)
  Receive Date: 20101229
  Receipt Date: 20101210
  Transmission Date: 20110411
  Serious: No
  Sender: FDA-Public Use
  Company Number: US-PFIZER INC-2010172401

PATIENT
  Age: 66 Year
  Sex: Female
  Weight: 106.58 kg

DRUGS (4)
  1. ADVIL [Suspect]
     Indication: ARTHRALGIA
     Dosage: 600 MG, UNK
     Dates: start: 20101203, end: 20101209
  2. ADVIL [Suspect]
     Indication: BACK PAIN
  3. LOTREL [Concomitant]
  4. SERTRALINE [Concomitant]

REACTIONS (1)
  - DRUG INEFFECTIVE [None]
